FAERS Safety Report 14012368 (Version 3)
Quarter: 2017Q4

REPORT INFORMATION
  Report Type: Spontaneous
  Country: US (occurrence: US)
  Receive Date: 20170926
  Receipt Date: 20171011
  Transmission Date: 20180321
  Serious: Yes (Hospitalization, Other)
  Sender: FDA-Public Use
  Company Number: PHEH2017US030590

PATIENT
  Sex: Female

DRUGS (1)
  1. AFINITOR [Suspect]
     Active Substance: EVEROLIMUS
     Indication: CARCINOID SYNDROME
     Dosage: 10 MG, QD
     Route: 048

REACTIONS (14)
  - Peripheral swelling [Unknown]
  - Dyspnoea [Unknown]
  - Cardiac failure [Unknown]
  - Dyspnoea [Recovered/Resolved]
  - Diarrhoea [Unknown]
  - Malaise [Unknown]
  - Vascular occlusion [Unknown]
  - Abdominal discomfort [Unknown]
  - Platelet count decreased [Unknown]
  - Complication associated with device [Unknown]
  - Vena cava embolism [Unknown]
  - Abdominal pain [Unknown]
  - Pleural effusion [Unknown]
  - Product use in unapproved indication [Unknown]
